FAERS Safety Report 22122088 (Version 1)
Quarter: 2023Q1

REPORT INFORMATION
  Report Type: Spontaneous
  Country: IT (occurrence: IT)
  Receive Date: 20230321
  Receipt Date: 20230321
  Transmission Date: 20230418
  Serious: Yes (Life-Threatening, Other)
  Sender: FDA-Public Use
  Company Number: IT-Accord-303425

PATIENT
  Age: 8 Year
  Sex: Male
  Weight: 35.3 kg

DRUGS (2)
  1. METHOTREXATE [Suspect]
     Active Substance: METHOTREXATE
     Indication: Product used for unknown indication
     Dosage: 8 GRAM PER SQUARE METRE
     Route: 065
  2. VINCRISTINE [Suspect]
     Active Substance: VINCRISTINE
     Indication: Product used for unknown indication
     Dosage: 1.4 MILLIGRAM/SQ. METER
     Route: 065

REACTIONS (6)
  - Hepatotoxicity [Unknown]
  - Acute kidney injury [Recovered/Resolved]
  - Drug level increased [Recovered/Resolved]
  - Nausea [Unknown]
  - Vomiting [Unknown]
  - Off label use [Unknown]
